FAERS Safety Report 5283001-3 (Version None)
Quarter: 2007Q1

REPORT INFORMATION
  Report Type: 
  Country: None (occurrence: None)
  Receive Date: 20070329
  Receipt Date: 20070329
  Transmission Date: 20070707
  Serious: Yes (Hospitalization)
  Sender: FDA-Public Use
  Company Number: None

PATIENT
  Age: 52 Year
  Sex: Male

DRUGS (8)
  1. ENALAPRIL MALEATE [Suspect]
     Indication: HYPERTENSION
     Dosage: 10MG  BID  PO
     Route: 048
     Dates: start: 20060706, end: 20070108
  2. DOCUSATE SODIUM [Concomitant]
  3. FERROUS SULFATE [Concomitant]
  4. SODIUM CHLORIDE [Concomitant]
  5. WARFARIN SODIUM [Concomitant]
  6. DIPHENHYDRAMINE HCL [Concomitant]
  7. METHYLPREDNISOLONE SODIUM SUCCINATE [Concomitant]
  8. OMEPRAZOLE [Concomitant]

REACTIONS (5)
  - FACE OEDEMA [None]
  - FLUID INTAKE REDUCED [None]
  - LIP OEDEMA [None]
  - PHARYNGOLARYNGEAL PAIN [None]
  - RENAL FAILURE ACUTE [None]
